FAERS Safety Report 14039822 (Version 2)
Quarter: 2017Q4

REPORT INFORMATION
  Report Type: Spontaneous
  Country: US (occurrence: US)
  Receive Date: 20171004
  Receipt Date: 20171018
  Transmission Date: 20180321
  Serious: No
  Sender: FDA-Public Use
  Company Number: US-AMGEN-USASP2017145112

PATIENT
  Sex: Female

DRUGS (2)
  1. PROLIA [Suspect]
     Active Substance: DENOSUMAB
     Dosage: UNK
     Route: 065
     Dates: start: 20170818
  2. PROLIA [Suspect]
     Active Substance: DENOSUMAB
     Indication: PRODUCT USED FOR UNKNOWN INDICATION
     Dosage: UNK
     Route: 065
     Dates: start: 2016, end: 2016

REACTIONS (7)
  - Jaw disorder [Unknown]
  - Pain [Unknown]
  - Headache [Not Recovered/Not Resolved]
  - Back pain [Unknown]
  - Insomnia [Not Recovered/Not Resolved]
  - Appetite disorder [Unknown]
  - Influenza like illness [Unknown]

NARRATIVE: CASE EVENT DATE: 201709
